FAERS Safety Report 8608653-9 (Version None)
Quarter: 2012Q3

REPORT INFORMATION
  Report Type: 
  Country: None (occurrence: None)
  Receive Date: 20120821
  Receipt Date: 20120814
  Transmission Date: 20120928
  Serious: Yes (Death, Hospitalization)
  Sender: FDA-Public Use
  Company Number: US-CELGENEUS-163-21880-12072770

PATIENT
  Sex: Female

DRUGS (1)
  1. REVLIMID [Suspect]
     Indication: NON-HODGKIN'S LYMPHOMA
     Dosage: 10 MILLIGRAM
     Route: 048
     Dates: start: 20120718, end: 20120101

REACTIONS (6)
  - LYMPHOMA [None]
  - THROMBOSIS [None]
  - DEATH [None]
  - ABDOMINAL PAIN UPPER [None]
  - RASH [None]
  - PAIN [None]
